FAERS Safety Report 4946387-2 (Version None)
Quarter: 2006Q1

REPORT INFORMATION
  Report Type: 
  Country: None (occurrence: None)
  Receive Date: 20060317
  Receipt Date: 20060307
  Transmission Date: 20060701
  Serious: Yes (Hospitalization)
  Sender: FDA-Public Use
  Company Number: BE-BRISTOL-MYERS SQUIBB COMPANY-13313572

PATIENT
  Age: 55 Year
  Sex: Male

DRUGS (3)
  1. CETUXIMAB [Suspect]
     Indication: RECTAL CANCER
     Route: 041
     Dates: start: 20051031, end: 20051205
  2. CAPECITABINE [Suspect]
     Indication: RECTAL CANCER
     Route: 048
     Dates: start: 20051107, end: 20051209
  3. RADIOTHERAPY [Suspect]
     Indication: RECTAL CANCER
     Dates: start: 20051107, end: 20051213

REACTIONS (2)
  - PHLEBITIS [None]
  - PULMONARY EMBOLISM [None]
